FAERS Safety Report 5088245-1 (Version None)
Quarter: 2006Q3

REPORT INFORMATION
  Report Type: 
  Country: None (occurrence: None)
  Receive Date: 20060823
  Receipt Date: 20060823
  Transmission Date: 20061208
  Serious: Yes (Hospitalization)
  Sender: FDA-Public Use
  Company Number: None

PATIENT
  Age: 62 Year
  Sex: Female
  Weight: 60.5 kg

DRUGS (16)
  1. WARFARIN SODIUM [Suspect]
     Indication: ANTICOAGULANT THERAPY
     Dosage: 4 MG PO DAILY
     Route: 048
  2. LEVAQUIN [Suspect]
     Indication: PRODUCTIVE COUGH
     Dosage: 500 MG DAILY   POST 3-4 DAYS
  3. BONIVA [Concomitant]
  4. LANOXIN [Concomitant]
  5. CARDIZEM [Concomitant]
  6. DEPAKOTE [Concomitant]
  7. FENTANYL [Concomitant]
  8. PROZAC [Concomitant]
  9. LASIX [Concomitant]
  10. LIDODERM [Concomitant]
  11. REMERON [Concomitant]
  12. CELLCEPT [Concomitant]
  13. PREDNISONE [Concomitant]
  14. SEROQUEL [Concomitant]
  15. MEGACE [Concomitant]
  16. DUODERM [Concomitant]

REACTIONS (6)
  - ACUTE RESPIRATORY DISTRESS SYNDROME [None]
  - ANAEMIA [None]
  - COAGULOPATHY [None]
  - HAEMATOMA [None]
  - INTERNATIONAL NORMALISED RATIO INCREASED [None]
  - PNEUMONIA ASPIRATION [None]
